FAERS Safety Report 20523494 (Version 2)
Quarter: 2022Q1

REPORT INFORMATION
  Report Type: Report from Study
  Country: SA (occurrence: SA)
  Receive Date: 20220228
  Receipt Date: 20220303
  Transmission Date: 20220424
  Serious: Yes (Hospitalization)
  Sender: FDA-Public Use
  Company Number: SA-BIOGEN-2022BI01099972

PATIENT
  Age: 6 Year
  Sex: Male
  Weight: 11 kg

DRUGS (1)
  1. SPINRAZA [Suspect]
     Active Substance: NUSINERSEN
     Indication: Spinal muscular atrophy
     Route: 037
     Dates: start: 20220103

REACTIONS (2)
  - Diarrhoea [Recovered/Resolved]
  - Vomiting [Recovered/Resolved]

NARRATIVE: CASE EVENT DATE: 20220220
